FAERS Safety Report 5970452-4 (Version None)
Quarter: 2008Q4

REPORT INFORMATION
  Report Type: 
  Country: None (occurrence: None)
  Receive Date: 20081126
  Receipt Date: 20081022
  Transmission Date: 20090506
  Serious: No
  Sender: FDA-Public Use
  Company Number: US-ABBOTT-08P-163-0483768-00

PATIENT
  Sex: Female
  Weight: 57.658 kg

DRUGS (11)
  1. SIMCOR [Suspect]
     Indication: BLOOD TRIGLYCERIDES INCREASED
     Dosage: 500/20 MILLIGRAMS EVERY NIGHT
     Route: 048
     Dates: start: 20080930, end: 20081025
  2. SIMCOR [Suspect]
     Indication: HIGH DENSITY LIPOPROTEIN DECREASED
  3. LEVOTHYROXINE SODIUM [Concomitant]
     Indication: THYROID THERAPY
     Route: 048
  4. FOSINOPRIL SODIUM [Concomitant]
     Indication: HYPERTENSION
     Route: 048
  5. METOPROLOL SUCCINATE [Concomitant]
     Indication: HYPERTENSION
     Route: 048
  6. METFORMIN HCL [Concomitant]
     Indication: DIABETES MELLITUS
     Route: 048
  7. ARTHROTEC [Concomitant]
     Indication: ARTHRITIS
     Route: 048
  8. ESOMEPRAZOLE MAGNESIUM [Concomitant]
     Indication: GASTROOESOPHAGEAL REFLUX DISEASE
     Route: 048
  9. CEFIXIME CHEWABLE [Concomitant]
     Indication: PAIN
     Dosage: NOT REPORTED
     Route: 048
  10. PHENERGAN HCL [Concomitant]
     Indication: NAUSEA
     Dosage: NOT REPORTED
     Route: 054
     Dates: start: 20080601
  11. PHENERGAN HCL [Concomitant]
     Indication: VOMITING

REACTIONS (5)
  - ASTHENIA [None]
  - DECREASED APPETITE [None]
  - DIARRHOEA [None]
  - NAUSEA [None]
  - VOMITING [None]
